FAERS Safety Report 4441037-6 (Version None)
Quarter: 2004Q3

REPORT INFORMATION
  Report Type: 
  Country: None (occurrence: None)
  Receive Date: 20040830
  Receipt Date: 20031216
  Transmission Date: 20050211
  Serious: Yes (Hospitalization)
  Sender: FDA-Public Use
  Company Number: 234485

PATIENT
  Age: 54 Year
  Sex: Male
  Weight: 115.2 kg

DRUGS (5)
  1. NOVOLIN 70/30 [Suspect]
     Indication: INSULIN-REQUIRING TYPE II DIABETES MELLITUS
     Dosage: 110 IU, QD, UNK
     Route: 065
  2. COZAAR [Concomitant]
  3. ATENOLOL [Concomitant]
  4. DIGOXIN [Concomitant]
  5. ASPIRIN [Concomitant]

REACTIONS (1)
  - BLOOD GLUCOSE INCREASED [None]
